FAERS Safety Report 5887007-2 (Version None)
Quarter: 2008Q3

REPORT INFORMATION
  Report Type: 
  Country: None (occurrence: None)
  Receive Date: 20080917
  Receipt Date: 20080904
  Transmission Date: 20090109
  Serious: Yes (Death, Life-Threatening, Hospitalization)
  Sender: FDA-Public Use
  Company Number: ZA-ELI_LILLY_AND_COMPANY-ZA200808003929

PATIENT
  Age: 28 Year
  Sex: Female

DRUGS (5)
  1. ZYPREXA [Suspect]
     Indication: BIPOLAR DISORDER
     Dosage: 5 MG, QOD
     Route: 048
  2. ZYPREXA [Interacting]
     Dosage: 7.5 MG, QOD
     Route: 048
  3. CYMBALTA [Concomitant]
     Indication: MAJOR DEPRESSION
     Dosage: 60 MG, DAILY (1/D)
     Route: 048
  4. ZITHROMAX [Interacting]
     Dosage: 500 MG,
     Route: 048
     Dates: start: 20080812, end: 20080814
  5. LAMICTAL [Concomitant]
     Dosage: 100 MG, DAILY (1/D)
     Route: 048

REACTIONS (4)
  - CARDIO-RESPIRATORY ARREST [None]
  - DRUG INTERACTION [None]
  - DRUG TOXICITY [None]
  - SUDDEN DEATH [None]
